FAERS Safety Report 21924032 (Version 1)
Quarter: 2023Q1

REPORT INFORMATION
  Report Type: Spontaneous
  Country: US (occurrence: US)
  Receive Date: 20230130
  Receipt Date: 20230130
  Transmission Date: 20230417
  Serious: No
  Sender: FDA-Public Use
  Company Number: US-UCBSA-2021059293

PATIENT
  Age: 72 Year
  Sex: Male

DRUGS (14)
  1. LEVETIRACETAM [Suspect]
     Active Substance: LEVETIRACETAM
     Indication: Seizure prophylaxis
     Dosage: 750 MILLIGRAM EVERY 12 HOURS
     Route: 048
  2. LEVETIRACETAM [Suspect]
     Active Substance: LEVETIRACETAM
     Indication: Off label use
  3. BUPROPION [Concomitant]
     Active Substance: BUPROPION
     Indication: Depression
     Dosage: UNKNOWN DOSE
  4. CARMUSTINE [Concomitant]
     Active Substance: CARMUSTINE
     Indication: Product used for unknown indication
     Dosage: UNKNOWN DOSE
  5. CYCLOPHOSPHAMIDE [Concomitant]
     Active Substance: CYCLOPHOSPHAMIDE
     Indication: Product used for unknown indication
     Dosage: UNKNOWN DOSE
  6. CYTARABINE [Concomitant]
     Active Substance: CYTARABINE
     Indication: Product used for unknown indication
     Dosage: UNKNOWN DOSE
  7. DOXORUBICIN [Concomitant]
     Active Substance: DOXORUBICIN
     Indication: Product used for unknown indication
     Dosage: UNKNOWN DOSE
  8. ETOPOSIDE [Concomitant]
     Active Substance: ETOPOSIDE
     Indication: Product used for unknown indication
     Dosage: UNKNOWN DOSE
  9. MELPHALAN [Concomitant]
     Active Substance: MELPHALAN
     Indication: Product used for unknown indication
     Dosage: UNKNOWN DOSE
  10. METHOTREXATE [Concomitant]
     Active Substance: METHOTREXATE
     Indication: Product used for unknown indication
     Dosage: UNKNOWN DOSE
     Route: 037
  11. MIRTAZAPINE [Concomitant]
     Active Substance: MIRTAZAPINE
     Indication: Depression
     Dosage: UNKNOWN DOSE
  12. PREDNISONE [Concomitant]
     Active Substance: PREDNISONE
     Indication: Product used for unknown indication
     Dosage: UNKNOWN DOSE
  13. RITUXIMAB [Concomitant]
     Active Substance: RITUXIMAB
     Indication: Product used for unknown indication
     Dosage: UNKNOWN DOSE
  14. VINCRISTINE [Concomitant]
     Active Substance: VINCRISTINE
     Indication: Product used for unknown indication
     Dosage: UNKNOWN DOSE

REACTIONS (1)
  - No adverse event [Unknown]
